FAERS Safety Report 20679964 (Version 4)
Quarter: 2023Q4

REPORT INFORMATION
  Report Type: Spontaneous
  Country: US (occurrence: US)
  Receive Date: 20220406
  Receipt Date: 20231003
  Transmission Date: 20240110
  Serious: No
  Sender: FDA-Public Use
  Company Number: US-PFIZER INC-202200512288

PATIENT
  Age: 71 Year
  Sex: Female

DRUGS (1)
  1. IBRANCE [Suspect]
     Active Substance: PALBOCICLIB
     Dosage: 100 MG

REACTIONS (11)
  - Neoplasm progression [Not Recovered/Not Resolved]
  - Back injury [Unknown]
  - Exostosis of jaw [Unknown]
  - Ear pain [Unknown]
  - Migraine [Unknown]
  - Sinus pain [Unknown]
  - Pain in jaw [Recovered/Resolved]
  - Toothache [Unknown]
  - Glossodynia [Unknown]
  - Oropharyngeal pain [Unknown]
  - Pain [Unknown]
